FAERS Safety Report 8351789 (Version 2)
Quarter: 2013Q3

REPORT INFORMATION
  Report Type: Spontaneous
  Country: ES (occurrence: ES)
  Receive Date: 20120124
  Receipt Date: 20130712
  Transmission Date: 20140515
  Serious: Yes (Hospitalization)
  Sender: FDA-Public Use
  Company Number: ES-GLAXOSMITHKLINE-B0777111A

PATIENT
  Age: 76 Year
  Sex: Male

DRUGS (3)
  1. VOTRIENT [Suspect]
     Indication: RENAL CANCER
     Dosage: 800MG PER DAY
     Route: 048
     Dates: start: 201110, end: 20111223
  2. UNKNOWN MEDICATION [Concomitant]
     Indication: DYSLIPIDAEMIA
  3. ELIGARD [Concomitant]
     Indication: PROSTATE CANCER

REACTIONS (7)
  - Posterior reversible encephalopathy syndrome [Unknown]
  - Hypertensive crisis [Recovered/Resolved]
  - Dementia [Unknown]
  - Dysarthria [Unknown]
  - Disorientation [Unknown]
  - Confusional state [Unknown]
  - Visual impairment [Unknown]
